FAERS Safety Report 8468799 (Version 8)
Quarter: 2012Q4

REPORT INFORMATION
  Report Type: 
  Country: US (occurrence: US)
  Receive Date: 20120321
  Receipt Date: 20120928
  Transmission Date: 20130627
  Serious: Yes (Hospitalization)
  Sender: FDA-Public Use
  Company Number: US-BIOGENIDEC-2012BI009565

PATIENT
  Age: 58 Year
  Sex: Female
  Weight: 71 kg

DRUGS (15)
  1. AVONEX [Suspect]
     Indication: MULTIPLE SCLEROSIS
     Route: 030
     Dates: start: 20060608, end: 20060820
  2. AVONEX [Suspect]
     Indication: MULTIPLE SCLEROSIS
     Route: 030
     Dates: start: 20081024, end: 20101130
  3. AVONEX [Suspect]
     Indication: MULTIPLE SCLEROSIS
     Route: 030
     Dates: start: 2011
  4. AVONEX [Suspect]
     Indication: MULTIPLE SCLEROSIS
     Route: 030
  5. AVONEX [Suspect]
     Indication: MULTIPLE SCLEROSIS
     Route: 030
     Dates: start: 20120817
  6. DURAGESIC [Concomitant]
     Dates: start: 20070401
  7. DURAGESIC [Concomitant]
     Dates: start: 201101
  8. GABAPENTIN [Concomitant]
     Dates: start: 200509
  9. METHADONE [Concomitant]
  10. PRIMIDONE [Concomitant]
  11. SERTRALINE [Concomitant]
  12. TIZANIDINE [Concomitant]
  13. AMPYRA [Concomitant]
     Indication: GAIT DISTURBANCE
     Route: 048
     Dates: start: 201106
  14. ZOLOFT [Concomitant]
     Indication: DEPRESSION
  15. TYSABRI [Concomitant]
     Indication: MULTIPLE SCLEROSIS
     Route: 042
     Dates: start: 20101207, end: 20110202

REACTIONS (16)
  - Abdominal pain [Not Recovered/Not Resolved]
  - Renal failure acute [Recovered/Resolved]
  - Hepatomegaly [Not Recovered/Not Resolved]
  - Pancreatitis acute [Recovered/Resolved]
  - Pneumonia [Recovered/Resolved]
  - Small intestinal obstruction [Recovered/Resolved]
  - Urinary tract infection [Recovered/Resolved]
  - Biliary tract operation [Recovered/Resolved]
  - Depression [Not Recovered/Not Resolved]
  - Headache [Recovered/Resolved]
  - Pain [Recovered/Resolved]
  - Post procedural complication [Recovered/Resolved]
  - Liver function test abnormal [Recovered/Resolved]
  - Asthenia [Not Recovered/Not Resolved]
  - Muscle spasms [Not Recovered/Not Resolved]
  - Multiple sclerosis relapse [Recovered/Resolved]
